FAERS Safety Report 5701671-X (Version None)
Quarter: 2008Q2

REPORT INFORMATION
  Report Type: 
  Country: None (occurrence: None)
  Receive Date: 20080411
  Receipt Date: 20080404
  Transmission Date: 20081010
  Serious: Yes (Other)
  Sender: FDA-Public Use
  Company Number: US-WYE-H03173508

PATIENT
  Age: 20 Year
  Sex: Male

DRUGS (2)
  1. EFFEXOR [Suspect]
     Indication: DEPRESSION
     Dosage: UNKNOWN
  2. EFFEXOR [Suspect]
     Indication: ANXIETY

REACTIONS (2)
  - LOSS OF CONSCIOUSNESS [None]
  - SUDDEN CARDIAC DEATH [None]
